FAERS Safety Report 24061155 (Version 1)
Quarter: 2024Q3

REPORT INFORMATION
  Report Type: Spontaneous
  Country: US (occurrence: None)
  Receive Date: 20240705
  Receipt Date: 20240705
  Transmission Date: 20241016
  Serious: No
  Sender: Public
  Company Number: None

PATIENT
  Sex: Male

DRUGS (2)
  1. RINVOQ [Suspect]
     Active Substance: UPADACITINIB
     Indication: Ankylosing spondylitis
     Dosage: 15MG ONE TIME A DAY BY MOUTH?
     Route: 048
     Dates: start: 202404
  2. CONSENTYX SENSOR READY PEN (1/PK) [Concomitant]

REACTIONS (1)
  - Oxygen saturation decreased [None]
